FAERS Safety Report 10067588 (Version 1)
Quarter: 2014Q2

REPORT INFORMATION
  Report Type: Spontaneous
  Country: IT (occurrence: IT)
  Receive Date: 20140409
  Receipt Date: 20140409
  Transmission Date: 20141212
  Serious: Yes (Other)
  Sender: FDA-Public Use
  Company Number: IT-EISAI INC-E3810-07003-SPO-IT

PATIENT
  Age: 78 Year
  Sex: Female

DRUGS (2)
  1. RABEPRAZOLE SODIUM [Suspect]
     Indication: GASTROOESOPHAGEAL REFLUX DISEASE
     Route: 048
     Dates: start: 20130701, end: 20140201
  2. PREDNISOLONE HEMISUCCINATE [Concomitant]

REACTIONS (3)
  - Vertigo [Recovered/Resolved]
  - Confusional state [Recovered/Resolved]
  - Dermatitis [Recovered/Resolved]
